FAERS Safety Report 4944021-9 (Version None)
Quarter: 2006Q1

REPORT INFORMATION
  Report Type: 
  Country: None (occurrence: None)
  Receive Date: 20060310
  Receipt Date: 20060223
  Transmission Date: 20060701
  Serious: Yes (Hospitalization)
  Sender: FDA-Public Use
  Company Number: PHEH2005US13671

PATIENT
  Age: 89 Year
  Sex: Female
  Weight: 81.6475 kg

DRUGS (3)
  1. VISUDYNE [Suspect]
     Indication: MACULAR DEGENERATION
     Dates: start: 20051005, end: 20051005
  2. HYDROCHLOROTHIAZIDE [Concomitant]
  3. LOTENSIN [Concomitant]

REACTIONS (8)
  - BACK PAIN [None]
  - BLOOD PRESSURE INCREASED [None]
  - DIARRHOEA [None]
  - DISORIENTATION [None]
  - DRUG HYPERSENSITIVITY [None]
  - NAUSEA [None]
  - RENAL FAILURE [None]
  - URTICARIA [None]
